FAERS Safety Report 6434629-6 (Version None)
Quarter: 2009Q4

REPORT INFORMATION
  Report Type: 
  Country: None (occurrence: None)
  Receive Date: 20091110
  Receipt Date: 20091105
  Transmission Date: 20100525
  Serious: Yes (Hospitalization)
  Sender: FDA-Public Use
  Company Number: B0602048A

PATIENT
  Sex: Male

DRUGS (7)
  1. CLAMOXYL [Suspect]
     Indication: ERYSIPELAS
     Dosage: 1G THREE TIMES PER DAY
     Route: 048
     Dates: start: 20090906, end: 20090907
  2. AMODEX [Suspect]
     Indication: ERYSIPELAS
     Dosage: 1G THREE TIMES PER DAY
     Route: 048
     Dates: start: 20090831, end: 20090902
  3. IBUPROFEN [Suspect]
     Indication: ERYSIPELAS
     Route: 048
     Dates: start: 20090831, end: 20090902
  4. PARACETAMOL [Suspect]
     Indication: ERYSIPELAS
     Route: 048
     Dates: start: 20090831, end: 20090902
  5. PENICILLIN G [Suspect]
     Indication: ERYSIPELAS
     Dosage: 6U6 FOUR TIMES PER DAY
     Route: 042
     Dates: start: 20090902, end: 20090906
  6. DOMPERIDONE [Suspect]
     Dosage: 10MG BEFORE MEALS
     Route: 048
     Dates: start: 20090831, end: 20090902
  7. ACUPAN [Suspect]
     Indication: PAIN
     Dosage: 1AMP AS REQUIRED
     Route: 042
     Dates: start: 20090903, end: 20090904

REACTIONS (4)
  - CONDITION AGGRAVATED [None]
  - ECZEMA [None]
  - EOSINOPHIL COUNT INCREASED [None]
  - RASH MACULO-PAPULAR [None]
